FAERS Safety Report 8655500 (Version 2)
Quarter: 2013Q1

REPORT INFORMATION
  Report Type: Spontaneous
  Country: FI (occurrence: FI)
  Receive Date: 20120709
  Receipt Date: 20130221
  Transmission Date: 20140127
  Serious: Yes (Hospitalization, Other)
  Sender: FDA-Public Use
  Company Number: FI-ELI_LILLY_AND_COMPANY-FI201206008756

PATIENT
  Age: 69 Year
  Sex: Female
  Weight: 38 kg

DRUGS (4)
  1. FORSTEO [Suspect]
     Indication: OSTEOPOROSIS
     Dosage: 20 UG, QD
     Route: 065
     Dates: start: 20100820
  2. MAGNESIUM [Concomitant]
     Indication: MUSCLE SPASMS
     Dosage: UNK, UNKNOWN
     Route: 065
  3. IDEOS [Concomitant]
     Indication: MEDICAL DIET
     Dosage: UNK, UNKNOWN
     Route: 065
  4. PANADOL [Concomitant]
     Indication: PAIN
     Dosage: UNK, QD
     Route: 065

REACTIONS (3)
  - Limb operation [Recovered/Resolved]
  - Pneumonia [Recovered/Resolved]
  - Laboratory test abnormal [Not Recovered/Not Resolved]
